FAERS Safety Report 15829812 (Version 1)
Quarter: 2019Q1

REPORT INFORMATION
  Report Type: Spontaneous
  Country: US (occurrence: US)
  Receive Date: 20190115
  Receipt Date: 20190115
  Transmission Date: 20190417
  Serious: No
  Sender: FDA-Public Use
  Company Number: US-PERRIGO-18US007924

PATIENT
  Sex: Female
  Weight: 60.77 kg

DRUGS (2)
  1. TRETINOIN 0.05% CREAM (2L4) [Suspect]
     Active Substance: TRETINOIN
     Indication: SKIN DISCOLOURATION
     Dosage: PEA SIZE AMOUNT, 3 TIMES WEEKLY
     Route: 061
     Dates: start: 2017
  2. TRETINOIN 0.05% CREAM (2L4) [Suspect]
     Active Substance: TRETINOIN
     Dosage: PEA SIZE AMOUNT, SINGLE
     Route: 061
     Dates: start: 20180805, end: 20180805

REACTIONS (2)
  - Off label use [Recovered/Resolved]
  - No adverse event [None]

NARRATIVE: CASE EVENT DATE: 2017
